FAERS Safety Report 10398656 (Version 1)
Quarter: 2014Q3

REPORT INFORMATION
  Report Type: Spontaneous
  Country: US (occurrence: None)
  Receive Date: 20140818
  Receipt Date: 20140818
  Transmission Date: 20150326
  Serious: Yes (Hospitalization)
  Sender: FDA-Public Use
  Company Number: None

PATIENT
  Age: 83 Year
  Sex: Female
  Weight: 58.97 kg

DRUGS (14)
  1. CEFTAROLINE [Suspect]
     Active Substance: CEFTAROLINE
     Indication: STAPHYLOCOCCAL INFECTION
     Route: 042
     Dates: start: 20140326, end: 20140417
  2. PROMETHAZINE [Concomitant]
     Active Substance: PROMETHAZINE\PROMETHAZINE HYDROCHLORIDE
  3. ESCITALOPRAM [Concomitant]
     Active Substance: ESCITALOPRAM OXALATE
  4. DONEPEZIL [Concomitant]
     Active Substance: DONEPEZIL
  5. HYDROXYCHLOROQUINE [Concomitant]
     Active Substance: HYDROXYCHLOROQUINE
  6. FERROUS SULFATE [Concomitant]
     Active Substance: FERROUS SULFATE\FERROUS SULFATE, DRIED
  7. FOSAMAX [Concomitant]
     Active Substance: ALENDRONATE SODIUM
  8. MULTIVITAMIN [Concomitant]
     Active Substance: VITAMINS
  9. HYDROXYZINE [Concomitant]
     Active Substance: HYDROXYZINE\HYDROXYZINE HYDROCHLORIDE
  10. LEVOTHYROXINE [Concomitant]
     Active Substance: LEVOTHYROXINE
  11. CEFTAROLINE [Suspect]
     Active Substance: CEFTAROLINE
     Indication: ARTHRITIS INFECTIVE
     Route: 042
     Dates: start: 20140326, end: 20140417
  12. ASPIRIN EC [Concomitant]
     Active Substance: ASPIRIN
  13. ZOLPIDEM [Concomitant]
     Active Substance: ZOLPIDEM\ZOLPIDEM TARTRATE
  14. PREDNISONE. [Concomitant]
     Active Substance: PREDNISONE

REACTIONS (12)
  - Sinus bradycardia [None]
  - Electrocardiogram Q wave abnormal [None]
  - Electrocardiogram T wave abnormal [None]
  - Arthralgia [None]
  - Atrial fibrillation [None]
  - Supraventricular extrasystoles [None]
  - Thrombocytopenia [None]
  - Bacterial infection [None]
  - Condition aggravated [None]
  - Asthenia [None]
  - Neutrophil count decreased [None]
  - Leukopenia [None]

NARRATIVE: CASE EVENT DATE: 20140417
